FAERS Safety Report 4622805-4 (Version None)
Quarter: 2005Q1

REPORT INFORMATION
  Report Type: 
  Country: None (occurrence: None)
  Receive Date: 20050328
  Receipt Date: 20050328
  Transmission Date: 20050727
  Serious: Yes (Life-Threatening, Hospitalization, Disabling)
  Sender: FDA-Public Use
  Company Number: None

PATIENT
  Age: 53 Year
  Sex: Male
  Weight: 65.318 kg

DRUGS (5)
  1. DYNACIRC CR [Suspect]
     Indication: HYPERTENSION
     Dosage: 5 MG   ONCE PER DAY   ORAL
     Route: 048
     Dates: start: 20030330, end: 20030410
  2. PROGRAF [Concomitant]
  3. PREDNISONE TAB [Concomitant]
  4. HYDROCHLOROTHIAZIDE [Concomitant]
  5. METOPROLOL TARTRATE [Concomitant]

REACTIONS (4)
  - AMNESIA [None]
  - HEAD INJURY [None]
  - POST CONCUSSION SYNDROME [None]
  - SYNCOPE [None]
